FAERS Safety Report 9254249 (Version 1)
Quarter: 2013Q1

REPORT INFORMATION
  Report Type: Spontaneous
  Country: US (occurrence: None)
  Receive Date: 20121211
  Receipt Date: 20121211
  Transmission Date: 20140127
  Serious: Yes (Other)
  Sender: FDA-Public Use
  Company Number: 1209USA003136

PATIENT
  Sex: Male

DRUGS (3)
  1. ISENTRESS [Suspect]
     Dosage: ORAL
     Route: 048
  2. PREZISTA [Suspect]
     Dosage: ORAL
     Route: 048
  3. NORVIR (RITONAVIR) [Suspect]
     Dosage: ORAL
     Route: 048

REACTIONS (2)
  - Suicidal ideation [None]
  - Depression [None]
